FAERS Safety Report 5156134-X (Version None)
Quarter: 2006Q4

REPORT INFORMATION
  Report Type: 
  Country: None (occurrence: None)
  Receive Date: 20061114
  Receipt Date: 20061101
  Transmission Date: 20070319
  Serious: Yes (Death)
  Sender: FDA-Public Use
  Company Number: HQWYE305403NOV06

PATIENT
  Age: 44 Year
  Sex: 0

DRUGS (2)
  1. DIMETAPP ND (LORATADINE, TABLET, ORALLY DISINTEGRATING) [Suspect]
     Indication: INTENTIONAL OVERDOSE
     Dosage: ORAL
     Route: 048
     Dates: start: 20050101, end: 20050101
  2. BUPROPION HCL [Suspect]
     Indication: DRUG USE FOR UNKNOWN INDICATION
     Dosage: ORAL
     Route: 048
     Dates: start: 20050101, end: 20050101

REACTIONS (1)
  - INTENTIONAL OVERDOSE [None]
